FAERS Safety Report 21508019 (Version 1)
Quarter: 2022Q4

REPORT INFORMATION
  Report Type: Spontaneous
  Country: US (occurrence: None)
  Receive Date: 20221026
  Receipt Date: 20221026
  Transmission Date: 20230112
  Serious: No
  Sender: FDA-Public Use
  Company Number: 2022A335799

PATIENT
  Age: 83 Year

DRUGS (1)
  1. TEZSPIRE [Suspect]
     Active Substance: TEZEPELUMAB-EKKO
     Indication: Asthma
     Route: 065
     Dates: start: 20220812, end: 20220812

REACTIONS (5)
  - Asthma [Unknown]
  - Product dose omission issue [Unknown]
  - Myalgia [Unknown]
  - Pain [Unknown]
  - Gingival pain [Unknown]
